FAERS Safety Report 7316151-8 (Version None)
Quarter: 2011Q1

REPORT INFORMATION
  Report Type: 
  Country: None (occurrence: None)
  Receive Date: 20110225
  Receipt Date: 20110217
  Transmission Date: 20110831
  Serious: Yes (Other)
  Sender: FDA-Public Use
  Company Number: US-PURDUE-USA-2010-0047676

PATIENT
  Sex: Male
  Weight: 210 kg

DRUGS (4)
  1. OXYCONTIN [Suspect]
     Dosage: 40 MG, BID
  2. LISINOPRIL [Concomitant]
     Indication: HYPERTENSION
     Dosage: 20 MG, DAILY
  3. OXYCONTIN [Suspect]
     Indication: PAIN MANAGEMENT
     Dosage: 80 MG, UNK
     Dates: start: 20100801
  4. IBUPROFEN [Concomitant]
     Indication: PAIN MANAGEMENT
     Dosage: 800 MG, TID

REACTIONS (8)
  - DELUSION [None]
  - NERVOUSNESS [None]
  - HYPERHIDROSIS [None]
  - NIGHTMARE [None]
  - PSYCHOTIC DISORDER [None]
  - DIZZINESS [None]
  - RESTLESSNESS [None]
  - CHILLS [None]
